FAERS Safety Report 8456829-6 (Version None)
Quarter: 2012Q2

REPORT INFORMATION
  Report Type: 
  Country: None (occurrence: None)
  Receive Date: 20120621
  Receipt Date: 20120618
  Transmission Date: 20120825
  Serious: No
  Sender: FDA-Public Use
  Company Number: US-PFIZER INC-2012146474

PATIENT
  Sex: Male
  Weight: 81.633 kg

DRUGS (4)
  1. BYSTOLIC [Concomitant]
     Indication: HEART RATE ABNORMAL
     Dosage: 5 MG, 1X/DAY
     Dates: start: 20080101
  2. NIACIN [Concomitant]
     Indication: BLOOD CHOLESTEROL INCREASED
     Dosage: 1000 MG, 1X/DAY
  3. LIPITOR [Concomitant]
     Indication: BLOOD CHOLESTEROL INCREASED
     Dosage: 40 MG, 1X/DAY
  4. DEPO-TESTOSTERONE [Suspect]
     Indication: BLOOD TESTOSTERONE DECREASED
     Dosage: 0.75 ML, EVERY TWO WEEKS
     Route: 030
     Dates: start: 20110101

REACTIONS (3)
  - PALPITATIONS [None]
  - HOT FLUSH [None]
  - HEADACHE [None]
